FAERS Safety Report 5460178-8 (Version None)
Quarter: 2007Q3

REPORT INFORMATION
  Report Type: 
  Country: None (occurrence: None)
  Receive Date: 20070919
  Receipt Date: 20070601
  Transmission Date: 20080115
  Serious: No
  Sender: FDA-Public Use
  Company Number: US-ASTRAZENECA-2007UW13383

PATIENT
  Sex: Male

DRUGS (9)
  1. SEROQUEL [Suspect]
     Dosage: 25-50 MG
     Route: 048
  2. ATIVAN [Concomitant]
  3. GAMIMUNE [Concomitant]
  4. ALBUTEROL [Concomitant]
  5. VICODIN [Concomitant]
  6. RISPERDAL [Concomitant]
  7. LORAZEPAM [Concomitant]
  8. PULMICORT [Concomitant]
  9. PREDNISONE [Concomitant]

REACTIONS (1)
  - DYSPNOEA [None]
